FAERS Safety Report 19075849 (Version 3)
Quarter: 2021Q3

REPORT INFORMATION
  Report Type: Spontaneous
  Country: CA (occurrence: CA)
  Receive Date: 20210331
  Receipt Date: 20210924
  Transmission Date: 20211014
  Serious: Yes (Life-Threatening, Hospitalization, Other)
  Sender: FDA-Public Use
  Company Number: CA-009507513-2103CAN007658

PATIENT
  Age: 56 Year
  Sex: Female
  Weight: 69 kg

DRUGS (23)
  1. JANUMET XR [Suspect]
     Active Substance: METFORMIN HYDROCHLORIDE\SITAGLIPTIN PHOSPHATE
     Indication: HYPERTENSION
     Dosage: 850.0 MILLIGRAM, 3 EVERY 1 DAYS
     Route: 048
  2. ACETYLSALICYLIC ACID [Suspect]
     Active Substance: ASPIRIN
     Indication: PRODUCT USED FOR UNKNOWN INDICATION
     Dosage: 80.0 MILLIGRAM, 1 EVERY 1 DAY
     Route: 048
  3. IRBESARTAN. [Suspect]
     Active Substance: IRBESARTAN
     Indication: HYPERTENSION
     Dosage: 1.0 DOSAGE FORMS, 1 EVERY 1 DAYS
     Route: 065
  4. RASILEZ [Suspect]
     Active Substance: ALISKIREN
     Indication: HYPERTENSION
     Dosage: 150.0 MILLIGRAM, 1 EVERY 1 DAYS
     Route: 065
  5. LIPITOR [Suspect]
     Active Substance: ATORVASTATIN CALCIUM
     Indication: PRODUCT USED FOR UNKNOWN INDICATION
     Dosage: 20.0 MILLIGRAM, 1 EVERY 1 DAYS
     Route: 048
  6. METFORMIN [Concomitant]
     Active Substance: METFORMIN HYDROCHLORIDE
     Dosage: UNK
     Route: 065
  7. JANUVIA [Suspect]
     Active Substance: SITAGLIPTIN PHOSPHATE
     Dosage: 100.0 MILLIGRAM, 1 EVERY 1 DAY
     Route: 048
  8. JANUMET [Suspect]
     Active Substance: METFORMIN HYDROCHLORIDE\SITAGLIPTIN PHOSPHATE
     Indication: PRODUCT USED FOR UNKNOWN INDICATION
     Dosage: 850.0 MILLIGRAM, 3 EVERY 1 DAYS
     Route: 048
  9. RASILEZ [Suspect]
     Active Substance: ALISKIREN
     Indication: MICROALBUMINURIA
     Dosage: 150.0 MILLIGRAM, 1 EVERY 1 DAYS
     Route: 065
  10. ALISKIREN FUMARATE [Suspect]
     Active Substance: ALISKIREN HEMIFUMARATE
     Indication: HYPERTENSION
     Dosage: 150.0 MILLIGRAM, 1 EVERY 1 DAYS
     Route: 048
  11. ASA [Concomitant]
     Active Substance: ASPIRIN
     Dosage: UNK
     Route: 065
  12. ESOMEPRAZOLE. [Concomitant]
     Active Substance: ESOMEPRAZOLE MAGNESIUM
     Indication: PRODUCT USED FOR UNKNOWN INDICATION
     Dosage: UNK
     Route: 065
  13. JANUMET [Suspect]
     Active Substance: METFORMIN HYDROCHLORIDE\SITAGLIPTIN PHOSPHATE
     Indication: HYPERTENSION
     Dosage: 850.0 MILLIGRAM, 3 EVERY 1 DAYS
     Route: 048
  14. JANUMET XR [Suspect]
     Active Substance: METFORMIN HYDROCHLORIDE\SITAGLIPTIN PHOSPHATE
     Indication: PRODUCT USED FOR UNKNOWN INDICATION
     Dosage: 850.0 MILLIGRAM, 3 EVERY 1 DAYS
     Route: 048
  15. ESOMEPRAZOLE MAGNESIUM. [Suspect]
     Active Substance: ESOMEPRAZOLE MAGNESIUM
     Indication: PRODUCT USED FOR UNKNOWN INDICATION
     Dosage: 40.0 MILLIGRAM, UNK
     Route: 048
  16. AMLODIPINE [Suspect]
     Active Substance: AMLODIPINE BESYLATE
     Dosage: 5.0 GRAM, 1 EVERY 1 DAYS
     Route: 048
  17. VITAMIN B12 [Concomitant]
     Active Substance: CYANOCOBALAMIN
     Indication: PRODUCT USED FOR UNKNOWN INDICATION
     Dosage: UNK
  18. AMLODIPINE [Suspect]
     Active Substance: AMLODIPINE BESYLATE
     Dosage: 5.0 MILLIGRAM, 1 EVERY 1 DAYS
     Route: 048
  19. IRBESARTAN. [Suspect]
     Active Substance: IRBESARTAN
     Dosage: 300.0 MILLIGRAM, 1 EVERY 1 DAYS
     Route: 048
  20. AVAPRO [Concomitant]
     Active Substance: IRBESARTAN
     Dosage: UNK
     Route: 065
  21. AMLODIPINE [Suspect]
     Active Substance: AMLODIPINE BESYLATE
     Indication: PRODUCT USED FOR UNKNOWN INDICATION
     Dosage: 50.0 MILLIGRAM, 1 EVERY 1 DAYS
     Route: 048
  22. RASILEZ [Suspect]
     Active Substance: ALISKIREN
     Indication: OFF LABEL USE
     Dosage: 150.0 MILLIGRAM, 1 EVERY 1 DAYS
     Route: 065
  23. IRBESARTAN SANDOZ [Suspect]
     Active Substance: IRBESARTAN
     Indication: HYPERTENSION
     Dosage: 300.0 MILLIGRAM, 1 EVERY 1 DAYS
     Route: 048

REACTIONS (23)
  - Carotid artery thrombosis [Unknown]
  - Confusional state [Unknown]
  - Nausea [Unknown]
  - Sensory loss [Unknown]
  - Eating disorder [Unknown]
  - Motor dysfunction [Unknown]
  - Affect lability [Unknown]
  - Aphasia [Unknown]
  - Muscular weakness [Unknown]
  - Neurologic neglect syndrome [Unknown]
  - Asthenia [Unknown]
  - Hemiplegia [Unknown]
  - Muscle spasticity [Unknown]
  - Coordination abnormal [Unknown]
  - Hemiparesis [Unknown]
  - Personality disorder [Unknown]
  - Impaired work ability [Unknown]
  - Dysarthria [Unknown]
  - Dysphagia [Unknown]
  - Adjustment disorder [Unknown]
  - Anxiety [Unknown]
  - Cerebrovascular accident [Unknown]
  - Fall [Unknown]
